FAERS Safety Report 9634065 (Version 3)
Quarter: 2013Q4

REPORT INFORMATION
  Report Type: Spontaneous
  Country: US (occurrence: US)
  Receive Date: 20131021
  Receipt Date: 20131117
  Transmission Date: 20140711
  Serious: No
  Sender: FDA-Public Use
  Company Number: US-009507513-1310USA008039

PATIENT
  Sex: Female

DRUGS (1)
  1. IMPLANON [Suspect]
     Route: 059

REACTIONS (3)
  - Fall [Unknown]
  - Pain in extremity [Unknown]
  - Device breakage [Unknown]
